FAERS Safety Report 24325562 (Version 2)
Quarter: 2024Q3

REPORT INFORMATION
  Report Type: Report from Study
  Country: US (occurrence: US)
  Receive Date: 20240917
  Receipt Date: 20240930
  Transmission Date: 20241017
  Serious: No
  Sender: ACADIA PHARMACEUTICALS
  Company Number: US-ACADIA PHARMACEUTICALS INC.-ACA-2024-TRF-005332

PATIENT
  Age: 16 Year
  Sex: Male

DRUGS (2)
  1. DAYBUE [Suspect]
     Active Substance: TROFINETIDE
     Indication: Rett syndrome
     Dosage: 50 MILLILITER, BID
     Route: 048
     Dates: start: 20230712
  2. DAYBUE [Suspect]
     Active Substance: TROFINETIDE
     Dosage: 37.5 MILLILITER, BID
     Route: 048

REACTIONS (1)
  - Tremor [Not Recovered/Not Resolved]

NARRATIVE: CASE EVENT DATE: 20240701
